FAERS Safety Report 4587633-7 (Version None)
Quarter: 2005Q1

REPORT INFORMATION
  Report Type: 
  Country: None (occurrence: None)
  Receive Date: 20050211
  Receipt Date: 20050127
  Transmission Date: 20050727
  Serious: Yes (Hospitalization, Disabling)
  Sender: FDA-Public Use
  Company Number: WAES 0408USA02096

PATIENT
  Age: 89 Year
  Sex: Male

DRUGS (7)
  1. COZAAR [Suspect]
     Indication: HYPERTENSION
     Dosage: SEE IMAGE
     Route: 048
     Dates: start: 20001208, end: 20001227
  2. COZAAR [Suspect]
     Indication: HYPERTENSION
     Dosage: SEE IMAGE
     Route: 048
     Dates: start: 20001228, end: 20040401
  3. ADALAT [Concomitant]
  4. BUFFERIN [Concomitant]
  5. ITOROL [Concomitant]
  6. MG OXIDE [Concomitant]
  7. ULCERLMIN [Concomitant]

REACTIONS (2)
  - CAROTID ARTERY OCCLUSION [None]
  - CEREBRAL INFARCTION [None]
